FAERS Safety Report 13488389 (Version 3)
Quarter: 2017Q2

REPORT INFORMATION
  Report Type: Spontaneous
  Country: US (occurrence: US)
  Receive Date: 20170426
  Receipt Date: 20170629
  Transmission Date: 20170830
  Serious: No
  Sender: FDA-Public Use
  Company Number: US-GLAXOSMITHKLINE-US2017057250

PATIENT
  Sex: Female

DRUGS (2)
  1. VENTOLIN HFA [Suspect]
     Active Substance: ALBUTEROL SULFATE
     Dosage: 4 PUFF(S), UNK
  2. VENTOLIN HFA [Suspect]
     Active Substance: ALBUTEROL SULFATE
     Indication: ASTHMA
     Dosage: 2 PUFF(S), UNK
     Route: 055

REACTIONS (7)
  - Asthma [Unknown]
  - Device use error [Unknown]
  - Product quality issue [Unknown]
  - Dyspnoea [Unknown]
  - Intentional overdose [Unknown]
  - Product cleaning inadequate [Unknown]
  - Product use issue [Unknown]
